FAERS Safety Report 6900311-1 (Version None)
Quarter: 2010Q3

REPORT INFORMATION
  Report Type: 
  Country: None (occurrence: None)
  Receive Date: 20100803
  Receipt Date: 20100720
  Transmission Date: 20110219
  Serious: Yes (Hospitalization, Other)
  Sender: FDA-Public Use
  Company Number: PHHY2010AU07350

PATIENT
  Sex: Male

DRUGS (4)
  1. CLOZARIL [Suspect]
     Dosage: 650 MG, UNK
     Dates: start: 20090821
  2. CLOZARIL [Suspect]
     Dosage: 700 MG
     Dates: end: 20091201
  3. CLOZARIL [Suspect]
     Dosage: UNK
     Dates: end: 20100601
  4. OLANZAPINE [Concomitant]
     Dosage: 10 MG MANE AND 20 MG NOCTE

REACTIONS (11)
  - ABNORMAL DREAMS [None]
  - BRADYCARDIA [None]
  - CONSTIPATION [None]
  - DELUSION [None]
  - DIASTOLIC DYSFUNCTION [None]
  - HEART RATE IRREGULAR [None]
  - MENTAL IMPAIRMENT [None]
  - PSYCHOTIC DISORDER [None]
  - SCHIZOPHRENIA [None]
  - TACHYCARDIA [None]
  - VENTRICULAR EXTRASYSTOLES [None]
